FAERS Safety Report 4303865-7 (Version None)
Quarter: 2004Q1

REPORT INFORMATION
  Report Type: 
  Country: None (occurrence: None)
  Receive Date: 20040225
  Receipt Date: 20040224
  Transmission Date: 20041129
  Serious: Yes (Other)
  Sender: FDA-Public Use
  Company Number: US-GLAXOSMITHKLINE-A0499626A

PATIENT
  Sex: Female

DRUGS (1)
  1. NAVELBINE [Suspect]
     Indication: OVARIAN CANCER METASTATIC
     Dosage: 25MGM2 SINGLE DOSE
     Route: 042
     Dates: start: 20040201

REACTIONS (2)
  - DIZZINESS [None]
  - SYNCOPE [None]
